FAERS Safety Report 8762267 (Version 3)
Quarter: 2012Q4

REPORT INFORMATION
  Report Type: 
  Country: US (occurrence: US)
  Receive Date: 20120830
  Receipt Date: 20121214
  Transmission Date: 20130627
  Serious: Yes (Hospitalization)
  Sender: FDA-Public Use
  Company Number: US-VERTEX PHARMACEUTICAL INC.-2012-020309

PATIENT
  Age: 54 Year
  Sex: Male
  Weight: 57 kg

DRUGS (15)
  1. INCIVEK [Suspect]
     Indication: HEPATITIS C
     Dosage: UNK
     Route: 048
     Dates: start: 20120815, end: 20120818
  2. PEGINTERFERON [Suspect]
     Indication: HEPATITIS C
     Dosage: 96 ?g, UNK
     Route: 058
     Dates: start: 20120612, end: 20120814
  3. RIBAVIRIN [Suspect]
     Indication: HEPATITIS C
     Dosage: 400 mg, bid
  4. ABACAVIR SULFATE W/LAMIVUDINE [Concomitant]
  5. ATAZANAVIR [Concomitant]
  6. RITONAVIR [Concomitant]
  7. BENZTROPINE [Concomitant]
  8. CHOLECALCIFEROL [Concomitant]
  9. GABAPENTIN [Concomitant]
  10. VICODIN [Concomitant]
  11. LITHIUM [Concomitant]
  12. MECLIZINE                          /00072801/ [Concomitant]
  13. PROPRANOLOL [Concomitant]
  14. RANITIDINE [Concomitant]
  15. TAMSULOSIN [Concomitant]

REACTIONS (5)
  - Ataxia [Recovered/Resolved]
  - Dysarthria [Recovered/Resolved]
  - Choreoathetosis [Recovered/Resolved]
  - Off label use [Unknown]
  - Asthenia [Unknown]
